FAERS Safety Report 6693315-8 (Version None)
Quarter: 2010Q2

REPORT INFORMATION
  Report Type: 
  Country: None (occurrence: None)
  Receive Date: 20100421
  Receipt Date: 20100421
  Transmission Date: 20101027
  Serious: Yes (Other)
  Sender: FDA-Public Use
  Company Number: None

PATIENT
  Age: 53 Year
  Sex: Female
  Weight: 106.1417 kg

DRUGS (1)
  1. ZYRTEC [Suspect]
     Indication: STEVENS-JOHNSON SYNDROME
     Dosage: 20 MG 1 X DAY PO
     Route: 048
     Dates: start: 20100329, end: 20100418

REACTIONS (4)
  - DRUG NAME CONFUSION [None]
  - MALAISE [None]
  - RASH GENERALISED [None]
  - SINUSITIS [None]
